FAERS Safety Report 8815644 (Version 1)
Quarter: 2012Q4

REPORT INFORMATION
  Report Type: 
  Country: KR (occurrence: KR)
  Receive Date: 20120928
  Receipt Date: 20120928
  Transmission Date: 20130627
  Serious: No
  Sender: FDA-Public Use
  Company Number: KR-B.I. PHARMACEUTICALS,INC./RIDGEFIELD-2012-CS-01406RK

PATIENT
  Sex: Female

DRUGS (6)
  1. TRAJENTA [Suspect]
     Indication: DIABETES MELLITUS
     Dosage: 1 tablet,QD
     Route: 048
     Dates: start: 20120725, end: 201208
  2. THIOCTACID HR TABLET [Concomitant]
     Dosage: 600 mg
     Route: 048
     Dates: start: 20120625
  3. GLUTAZONE TABLET [Concomitant]
     Dosage: 15 mg
     Route: 048
     Dates: start: 20120625
  4. DAIMIT TABLET [Concomitant]
     Route: 048
     Dates: start: 20120625
  5. ITORASE TABLET [Concomitant]
     Dosage: 50 mg
     Route: 048
     Dates: start: 20120625
  6. DIQVAN TABLET [Concomitant]
     Dosage: 80 mg
     Route: 048
     Dates: start: 20120625

REACTIONS (3)
  - Mouth ulceration [Recovered/Resolved]
  - Face oedema [Recovered/Resolved]
  - Plicated tongue [Recovered/Resolved]
